FAERS Safety Report 5070899-7 (Version None)
Quarter: 2006Q3

REPORT INFORMATION
  Report Type: 
  Country: None (occurrence: None)
  Receive Date: 20060804
  Receipt Date: 20060725
  Transmission Date: 20061208
  Serious: Yes (Hospitalization, Other)
  Sender: FDA-Public Use
  Company Number: NL-JNJFOC-20060704959

PATIENT
  Sex: Female

DRUGS (5)
  1. DAKTARIN [Suspect]
     Indication: DRUG USE FOR UNKNOWN INDICATION
  2. FENPROCOUMON [Concomitant]
     Route: 065
  3. BISOPROLOL FUMARATE [Concomitant]
     Route: 065
  4. YASMIN [Concomitant]
     Route: 065
  5. DICLOFENAC [Concomitant]
     Route: 065

REACTIONS (5)
  - ARTHROPATHY [None]
  - HEART RATE INCREASED [None]
  - HYPOTENSION [None]
  - PERICARDITIS [None]
  - PULMONARY EMBOLISM [None]
